FAERS Safety Report 14440654 (Version 3)
Quarter: 2018Q1

REPORT INFORMATION
  Report Type: Spontaneous
  Country: US (occurrence: US)
  Receive Date: 20180125
  Receipt Date: 20180315
  Transmission Date: 20180509
  Serious: No
  Sender: FDA-Public Use
  Company Number: US-009507513-1801USA001860

PATIENT
  Sex: Female
  Weight: 135.15 kg

DRUGS (1)
  1. NEXPLANON [Suspect]
     Active Substance: ETONOGESTREL
     Indication: CONTRACEPTION
     Dosage: 1 ROD/ 3 YEARS
     Route: 059
     Dates: start: 20160907, end: 20180102

REACTIONS (6)
  - Device breakage [Recovered/Resolved]
  - Device kink [Recovered/Resolved]
  - Menometrorrhagia [Recovered/Resolved]
  - Menstrual disorder [Unknown]
  - Complication associated with device [Recovered/Resolved]
  - Menstruation irregular [Unknown]
